FAERS Safety Report 19159727 (Version 1)
Quarter: 2021Q2

REPORT INFORMATION
  Report Type: Report from Study
  Country: HU (occurrence: HU)
  Receive Date: 20210420
  Receipt Date: 20210420
  Transmission Date: 20210717
  Serious: Yes (Other)
  Sender: FDA-Public Use
  Company Number: NVSC2021HU086635

PATIENT

DRUGS (1)
  1. KISQALI [Suspect]
     Active Substance: RIBOCICLIB
     Indication: NEOPLASM MALIGNANT
     Dosage: UNK
     Route: 065

REACTIONS (1)
  - COVID-19 [Recovered/Resolved]
